FAERS Safety Report 12951410 (Version 1)
Quarter: 2016Q4

REPORT INFORMATION
  Report Type: Spontaneous
  Country: CN (occurrence: CN)
  Receive Date: 20161117
  Receipt Date: 20161117
  Transmission Date: 20170207
  Serious: Yes (Other)
  Sender: FDA-Public Use
  Company Number: CN-BAYER-2016-215462

PATIENT
  Sex: Male
  Weight: 60 kg

DRUGS (1)
  1. KOGENATE FS [Suspect]
     Active Substance: ANTIHEMOPHILIC FACTOR, HUMAN RECOMBINANT
     Dosage: 500 IU, UNK

REACTIONS (4)
  - Haemarthrosis [None]
  - Gingival bleeding [None]
  - Drug ineffective [None]
  - Product quality issue [None]
